FAERS Safety Report 15649074 (Version 2)
Quarter: 2019Q1

REPORT INFORMATION
  Report Type: Report from Study
  Country: US (occurrence: US)
  Receive Date: 20181122
  Receipt Date: 20190211
  Transmission Date: 20190417
  Serious: No
  Sender: FDA-Public Use
  Company Number: US-ACADIA PHARMACEUTICALS INC.-ACA-2018-010098

PATIENT
  Age: 74 Year
  Sex: Male
  Weight: 77 kg

DRUGS (3)
  1. NUPLAZID [Suspect]
     Active Substance: PIMAVANSERIN TARTRATE
     Indication: PARKINSON^S DISEASE PSYCHOSIS
  2. NUPLAZID [Suspect]
     Active Substance: PIMAVANSERIN TARTRATE
     Indication: HALLUCINATION
     Dosage: 17 MG, QD
     Route: 065
     Dates: start: 20180825, end: 201808
  3. NUPLAZID [Suspect]
     Active Substance: PIMAVANSERIN TARTRATE
     Indication: DELUSION
     Dosage: 34 MG CAPSULE AT BEDTIME, QD
     Route: 048
     Dates: start: 2018

REACTIONS (8)
  - Underdose [Unknown]
  - Colour blindness [Unknown]
  - Visual acuity reduced [Unknown]
  - Hallucinations, mixed [Unknown]
  - Drug ineffective [Unknown]
  - Nightmare [Unknown]
  - Photopsia [Unknown]
  - Renal pain [Recovered/Resolved]

NARRATIVE: CASE EVENT DATE: 2018
